FAERS Safety Report 4574251-X (Version None)
Quarter: 2005Q1

REPORT INFORMATION
  Report Type: 
  Country: None (occurrence: None)
  Receive Date: 20050208
  Receipt Date: 20041116
  Transmission Date: 20050727
  Serious: No
  Sender: FDA-Public Use
  Company Number: US-GLAXOSMITHKLINE-A0534122A

PATIENT
  Age: 64 Year
  Sex: Female

DRUGS (2)
  1. PAXIL [Suspect]
     Dosage: 10MG PER DAY
     Route: 048
     Dates: start: 20040917
  2. NO CONCURRENT MEDICATION [Concomitant]

REACTIONS (3)
  - DYSURIA [None]
  - FEELING JITTERY [None]
  - URETHRAL PAIN [None]
